FAERS Safety Report 20021587 (Version 2)
Quarter: 2023Q1

REPORT INFORMATION
  Report Type: Report from Study
  Country: US (occurrence: US)
  Receive Date: 20211101
  Receipt Date: 20230120
  Transmission Date: 20230418
  Serious: Yes (Other)
  Sender: FDA-Public Use
  Company Number: US-JAZZ-2021-US-014422

PATIENT
  Sex: Male

DRUGS (11)
  1. XYWAV [Suspect]
     Active Substance: CALCIUM OXYBATE\MAGNESIUM OXYBATE\POTASSIUM OXYBATE\SODIUM OXYBATE
     Indication: Narcolepsy
     Dosage: 4 GRAM, BID
     Route: 048
     Dates: start: 202012, end: 2021
  2. PRAZOSIN [Concomitant]
     Active Substance: PRAZOSIN
     Indication: Product used for unknown indication
     Dosage: UNK UNK, TID
     Route: 048
     Dates: start: 20010728
  3. NUVIGIL [Concomitant]
     Active Substance: ARMODAFINIL
     Indication: Product used for unknown indication
     Dosage: 200 MILLIGRAM, BID
     Route: 048
  4. NUVIGIL [Concomitant]
     Active Substance: ARMODAFINIL
     Dosage: 400 MILLIGRAM, QD
     Route: 048
  5. REXULTI [Concomitant]
     Active Substance: BREXPIPRAZOLE
     Indication: Product used for unknown indication
     Dosage: UNK
     Route: 048
  6. VRAYLAR [Concomitant]
     Active Substance: CARIPRAZINE
     Indication: Product used for unknown indication
     Dosage: UNK, QD
     Route: 048
  7. DULOXETINE [Concomitant]
     Active Substance: DULOXETINE
     Dosage: UNK
     Route: 048
  8. LITHIUM CARBONATE [Concomitant]
     Active Substance: LITHIUM CARBONATE
     Indication: Product used for unknown indication
     Dosage: UNK, TID
     Route: 048
  9. MODAFINIL [Concomitant]
     Active Substance: MODAFINIL
     Indication: Product used for unknown indication
     Dosage: 200 MILLIGRAM, BID
     Route: 048
  10. MODAFINIL [Concomitant]
     Active Substance: MODAFINIL
     Dosage: 60 MILLIGRAM, BID
     Route: 048
  11. PROPRANOLOL [Concomitant]
     Active Substance: PROPRANOLOL HYDROCHLORIDE
     Indication: Product used for unknown indication
     Dosage: UNK

REACTIONS (1)
  - Suicidal ideation [Not Recovered/Not Resolved]
